FAERS Safety Report 16205524 (Version 1)
Quarter: 2019Q2

REPORT INFORMATION
  Report Type: Spontaneous
  Country: DE (occurrence: DE)
  Receive Date: 20190417
  Receipt Date: 20190417
  Transmission Date: 20190711
  Serious: Yes (Other)
  Sender: FDA-Public Use
  Company Number: DE-TEVA-2019-DE-1038377

PATIENT
  Age: 52 Year
  Sex: Female

DRUGS (6)
  1. DIAZEPAM-RATIOPHARM 10 MG TABLETTEN [Suspect]
     Active Substance: DIAZEPAM
     Indication: NERVOUSNESS
  2. DIAZEPAM-RATIOPHARM 10 MG TABLETTEN [Suspect]
     Active Substance: DIAZEPAM
     Indication: INSOMNIA
     Dosage: FOR WEEKS NOTHING OR SEVERAL TABLETS AT ONCE
     Route: 048
     Dates: start: 1999
  3. PLANUM 20MG (TEMAZEPAM) [Suspect]
     Active Substance: TEMAZEPAM
     Indication: INSOMNIA
     Dosage: FOR WEEKS NOTHING OR SEVERAL TABLETS AT ONCE
     Route: 048
     Dates: start: 1999
  4. PLANUM 20MG (TEMAZEPAM) [Suspect]
     Active Substance: TEMAZEPAM
     Indication: NERVOUSNESS
  5. MIRTAZAPIN 15MG 1A PHARMA [Suspect]
     Active Substance: MIRTAZAPINE
     Indication: INSOMNIA
     Dosage: 15 MILLIGRAM DAILY;
     Route: 048
     Dates: start: 1999
  6. MIRTAZAPIN 15MG 1A PHARMA [Suspect]
     Active Substance: MIRTAZAPINE
     Indication: NERVOUSNESS

REACTIONS (4)
  - Drug abuse [Unknown]
  - Liver function test increased [Not Recovered/Not Resolved]
  - Transaminases increased [Not Recovered/Not Resolved]
  - Dependence [Not Recovered/Not Resolved]

NARRATIVE: CASE EVENT DATE: 201810
